FAERS Safety Report 16695840 (Version 1)
Quarter: 2019Q3

REPORT INFORMATION
  Report Type: Spontaneous
  Country: GB (occurrence: GB)
  Receive Date: 20190813
  Receipt Date: 20190813
  Transmission Date: 20191004
  Serious: Yes (Other)
  Sender: FDA-Public Use
  Company Number: GB-CONCORDIA PHARMACEUTICALS INC.-E2B_00020937

PATIENT
  Age: 39 Year
  Sex: Male
  Weight: 89 kg

DRUGS (3)
  1. PREDNISOLONE. [Suspect]
     Active Substance: PREDNISOLONE
     Indication: ASTHMA
     Route: 048
     Dates: start: 20190504, end: 20190511
  2. MONTELUKAST [Concomitant]
     Active Substance: MONTELUKAST SODIUM
  3. IMIPRAMINE [Concomitant]
     Active Substance: IMIPRAMINE

REACTIONS (1)
  - Hyperaesthesia teeth [Not Recovered/Not Resolved]

NARRATIVE: CASE EVENT DATE: 20190507
